FAERS Safety Report 4880149-X (Version None)
Quarter: 2006Q1

REPORT INFORMATION
  Report Type: 
  Country: None (occurrence: None)
  Receive Date: 20060111
  Receipt Date: 20060104
  Transmission Date: 20060701
  Serious: Yes (Other)
  Sender: FDA-Public Use
  Company Number: 235032K05USA

PATIENT
  Age: 60 Year
  Sex: Female
  Weight: 88.905 kg

DRUGS (6)
  1. REBIF [Suspect]
     Indication: MULTIPLE SCLEROSIS
     Dosage: 44 MCG, 3 IN 1 WEEKS, SUBCUTANEOUS
     Route: 058
     Dates: start: 20041103
  2. VIOXX [Concomitant]
  3. ASPIRIN [Concomitant]
  4. TYLENOL (COTYLENOL) [Concomitant]
  5. NAPROXEN [Concomitant]
  6. AVONEX [Concomitant]

REACTIONS (5)
  - GASTROINTESTINAL EROSION [None]
  - GASTROINTESTINAL HAEMORRHAGE [None]
  - INJECTION SITE IRRITATION [None]
  - INJECTION SITE PAIN [None]
  - IRON DEFICIENCY ANAEMIA [None]
